FAERS Safety Report 6331032-4 (Version None)
Quarter: 2009Q3

REPORT INFORMATION
  Report Type: 
  Country: None (occurrence: None)
  Receive Date: 20090827
  Receipt Date: 20090819
  Transmission Date: 20100115
  Serious: Yes (Other)
  Sender: FDA-Public Use
  Company Number: A0804137A

PATIENT
  Sex: Female

DRUGS (3)
  1. LAMICTAL [Suspect]
     Dosage: 150MG TWICE PER DAY
     Route: 048
  2. BIRTH CONTROL [Suspect]
     Route: 065
     Dates: start: 20090601
  3. KEPPRA [Concomitant]
     Dosage: 2500MG PER DAY

REACTIONS (3)
  - CONVULSION [None]
  - DRUG INTERACTION [None]
  - MENSTRUAL DISORDER [None]
